FAERS Safety Report 6311694-8 (Version None)
Quarter: 2009Q3

REPORT INFORMATION
  Report Type: 
  Country: None (occurrence: None)
  Receive Date: 20090813
  Receipt Date: 20090813
  Transmission Date: 20100115
  Serious: Yes (Other)
  Sender: FDA-Public Use
  Company Number: None

PATIENT
  Age: 78 Year
  Sex: Female
  Weight: 89.3586 kg

DRUGS (1)
  1. LOVAZA [Suspect]
     Dosage: 4 A DAY 1 MONTH

REACTIONS (6)
  - EAR DISCOMFORT [None]
  - HEADACHE [None]
  - LOCAL SWELLING [None]
  - NECK PAIN [None]
  - OROPHARYNGEAL PAIN [None]
  - SWELLING FACE [None]
